FAERS Safety Report 11124953 (Version 2)
Quarter: 2015Q4

REPORT INFORMATION
  Report Type: Spontaneous
  Country: US (occurrence: US)
  Receive Date: 20150520
  Receipt Date: 20151006
  Transmission Date: 20160304
  Serious: Yes (Hospitalization)
  Sender: FDA-Public Use
  Company Number: US-ACTAVIS-2015-09830

PATIENT
  Age: 31 Year
  Sex: Female

DRUGS (5)
  1. PROGRAS [Concomitant]
     Indication: IMMUNE ENHANCEMENT THERAPY
     Dosage: 1 CAPSULE BID
     Route: 048
     Dates: start: 201501
  2. ZOLPIDEM TARTRATE (AELLC) [Suspect]
     Active Substance: ZOLPIDEM TARTRATE
     Indication: INSOMNIA
     Dosage: 12.5 MG, QHS
     Route: 048
     Dates: start: 20150430
  3. ZOLPIDEM TARTRATE (AELLC) [Suspect]
     Active Substance: ZOLPIDEM TARTRATE
     Dosage: 12.5 MG, QHS
     Dates: start: 201503, end: 20150326
  4. MYFORTIC [Concomitant]
     Active Substance: MYCOPHENOLATE SODIUM
     Indication: IMMUNE ENHANCEMENT THERAPY
     Dosage: UNK
     Route: 048
     Dates: start: 201501
  5. PREDNISONE. [Concomitant]
     Active Substance: PREDNISONE
     Indication: ARTHRITIS
     Dosage: UNK
     Route: 048
     Dates: start: 201503

REACTIONS (4)
  - Pyrexia [Not Recovered/Not Resolved]
  - Blister [Not Recovered/Not Resolved]
  - Rash [Not Recovered/Not Resolved]
  - Urticaria [Recovering/Resolving]

NARRATIVE: CASE EVENT DATE: 201503
